FAERS Safety Report 8356235-9 (Version None)
Quarter: 2012Q2

REPORT INFORMATION
  Report Type: 
  Country: None (occurrence: None)
  Receive Date: 20120510
  Receipt Date: 20120430
  Transmission Date: 20120825
  Serious: Yes (Hospitalization)
  Sender: FDA-Public Use
  Company Number: UTC-018069

PATIENT
  Age: 54 Year
  Sex: Female
  Weight: 61.36 kg

DRUGS (4)
  1. TRACLEER [Concomitant]
  2. DIURETICS (DIURETICS) [Concomitant]
  3. REMODULIN [Suspect]
     Indication: COR PULMONALE CHRONIC
     Dosage: 40-45 UG/KG (1 IN 1 MIN), SUBCUTANEOUS
     Route: 058
     Dates: start: 20100309
  4. COUMADIN (WARFARIN SODIUIM) [Concomitant]

REACTIONS (4)
  - INJECTION SITE HAEMORRHAGE [None]
  - MENTAL STATUS CHANGES [None]
  - BLOOD GLUCOSE DECREASED [None]
  - PULMONARY ARTERIAL PRESSURE INCREASED [None]
